FAERS Safety Report 26019578 (Version 1)
Quarter: 2025Q4

REPORT INFORMATION
  Report Type: Report from Study
  Country: CN (occurrence: CN)
  Receive Date: 20251110
  Receipt Date: 20251110
  Transmission Date: 20260117
  Serious: Yes (Other)
  Sender: ROCHE
  Company Number: CN-ROCHE-10000422460

PATIENT

DRUGS (4)
  1. BEVACIZUMAB [Suspect]
     Active Substance: BEVACIZUMAB
     Indication: Non-small cell lung cancer
     Route: 065
  2. ATEZOLIZUMAB [Suspect]
     Active Substance: ATEZOLIZUMAB
     Indication: Non-small cell lung cancer
     Route: 065
  3. CARBOPLATIN [Suspect]
     Active Substance: CARBOPLATIN
     Indication: Non-small cell lung cancer
     Route: 065
  4. PACLITAXEL [Suspect]
     Active Substance: PACLITAXEL
     Indication: Non-small cell lung cancer
     Route: 065

REACTIONS (53)
  - Hypoalbuminaemia [Unknown]
  - Anaemia [Unknown]
  - Leukopenia [Unknown]
  - Lymphopenia [Unknown]
  - Neutropenia [Unknown]
  - Thrombocytopenia [Unknown]
  - Pancytopenia [Unknown]
  - Pneumonitis [Unknown]
  - Pneumonia [Unknown]
  - Respiratory tract infection [Unknown]
  - Pulmonary embolism [Unknown]
  - Cough [Unknown]
  - Tachypnoea [Unknown]
  - Haemoptysis [Unknown]
  - Oesophagitis [Unknown]
  - Stomatitis [Unknown]
  - Colitis [Unknown]
  - Hepatitis [Unknown]
  - Pancreatitis [Unknown]
  - Decreased appetite [Unknown]
  - Nausea [Unknown]
  - Vomiting [Unknown]
  - Constipation [Unknown]
  - Diarrhoea [Unknown]
  - Proteinuria [Unknown]
  - Diabetes mellitus [Unknown]
  - Hypertension [Unknown]
  - Cerebrovascular accident [Unknown]
  - Paraesthesia [Unknown]
  - Ataxia [Unknown]
  - Cerebral ischaemia [Unknown]
  - Depressed level of consciousness [Unknown]
  - Dizziness [Unknown]
  - Headache [Unknown]
  - Neuropathy peripheral [Unknown]
  - Arthralgia [Unknown]
  - Myalgia [Unknown]
  - Alanine aminotransferase increased [Unknown]
  - Aspartate aminotransferase increased [Unknown]
  - Transaminases increased [Unknown]
  - Hyperkalaemia [Unknown]
  - Hypokalaemia [Unknown]
  - Hyponatraemia [Unknown]
  - Alopecia [Unknown]
  - Fatigue [Unknown]
  - Epistaxis [Unknown]
  - Weight decreased [Unknown]
  - Dehydration [Unknown]
  - Radiation skin injury [Unknown]
  - Rash [Unknown]
  - Pyrexia [Unknown]
  - Hypothyroidism [Unknown]
  - Hyperthyroidism [Unknown]
